FAERS Safety Report 7986636 (Version 2)
Quarter: 2013Q1

REPORT INFORMATION
  Report Type: Spontaneous
  Country: US (occurrence: US)
  Receive Date: 20110610
  Receipt Date: 20130313
  Transmission Date: 20140127
  Serious: Yes (Death, Other)
  Sender: FDA-Public Use
  Company Number: US-RB-028665-11

PATIENT
  Age: 25 Year
  Sex: Male
  Weight: 99 kg

DRUGS (3)
  1. SUBOXONE FILM [Suspect]
     Indication: DRUG DEPENDENCE
     Dosage: SUBOXONE FILM
     Route: 060
     Dates: start: 20101207
  2. SUBOXONE FILM [Suspect]
     Dosage: SUBOXONE FILM; DOSING DETAILS UNKNOWN; TAKING IT INCONSISTENTLY
     Route: 065
  3. HEROIN [Suspect]
     Indication: PRODUCT USED FOR UNKNOWN INDICATION
     Dosage: UNKNOWN DOSING DETAILS
     Route: 065

REACTIONS (2)
  - Drug abuse [Fatal]
  - Overdose [Fatal]
